FAERS Safety Report 6647074-5 (Version None)
Quarter: 2010Q1

REPORT INFORMATION
  Report Type: 
  Country: None (occurrence: None)
  Receive Date: 20100323
  Receipt Date: 20100310
  Transmission Date: 20100710
  Serious: No
  Sender: FDA-Public Use
  Company Number: US-B.I. PHARMACEUTICALS,INC./RIDGEFIELD-2010-BP-02886BP

PATIENT
  Sex: Female

DRUGS (9)
  1. SPIRIVA [Suspect]
     Indication: ASTHMA
     Dosage: 18 MCG
     Route: 055
     Dates: start: 20091101
  2. MULTAQ [Concomitant]
     Indication: ATRIAL FIBRILLATION
  3. VITAMINS [Concomitant]
     Indication: PROPHYLAXIS
  4. SINGULAIR [Concomitant]
     Indication: ASTHMA
  5. ATIVAN [Concomitant]
     Indication: SLEEP DISORDER
  6. COUMADIN [Concomitant]
     Indication: ATRIAL FIBRILLATION
  7. COZAAR [Concomitant]
     Indication: HYPERTENSION
  8. CRESTOR [Concomitant]
     Indication: BLOOD CHOLESTEROL INCREASED
  9. PROTONIX [Concomitant]
     Indication: GASTROOESOPHAGEAL REFLUX DISEASE

REACTIONS (1)
  - VIRAL INFECTION [None]
